FAERS Safety Report 21308105 (Version 1)
Quarter: 2022Q3

REPORT INFORMATION
  Report Type: Spontaneous
  Country: US (occurrence: None)
  Receive Date: 20220907
  Receipt Date: 20220907
  Transmission Date: 20221027
  Serious: Yes (Other)
  Sender: FDA-Public Use
  Company Number: None

PATIENT
  Age: 63 Year
  Sex: Female
  Weight: 102.5 kg

DRUGS (4)
  1. ABATACEPT [Suspect]
     Active Substance: ABATACEPT
     Indication: Rheumatoid arthritis
     Dosage: OTHER FREQUENCY : MONTHLY;?
     Route: 042
     Dates: start: 20130211
  2. PREDNISONE [Concomitant]
     Active Substance: PREDNISONE
     Dates: start: 20130905
  3. METHOTREXATE [Concomitant]
     Active Substance: METHOTREXATE
     Dates: start: 20130219, end: 20181010
  4. LEFLUNOMIDE [Concomitant]
     Active Substance: LEFLUNOMIDE
     Dates: start: 20160926

REACTIONS (2)
  - Intestinal ischaemia [None]
  - Small intestinal perforation [None]

NARRATIVE: CASE EVENT DATE: 20220902
